FAERS Safety Report 13272175 (Version 1)
Quarter: 2017Q1

REPORT INFORMATION
  Report Type: Report from Study
  Country: CN (occurrence: CN)
  Receive Date: 20170227
  Receipt Date: 20170227
  Transmission Date: 20170428
  Serious: Yes (Hospitalization, Other)
  Sender: FDA-Public Use
  Company Number: CN-ROCHE-1825099

PATIENT
  Sex: Female

DRUGS (2)
  1. CAPECITABINE. [Suspect]
     Active Substance: CAPECITABINE
     Indication: BREAST CANCER METASTATIC
     Dosage: 1250 MG/M2 OR 1000 MG/M2
     Route: 048
  2. UTD1 (EPOTHILONE ANALOG) [Suspect]
     Active Substance: INVESTIGATIONAL PRODUCT
     Indication: BREAST CANCER METASTATIC
     Dosage: ON DAY 1-DAY 5
     Route: 042

REACTIONS (31)
  - Cerebral infarction [Unknown]
  - Hyponatraemia [Unknown]
  - Nasal cyst [Unknown]
  - Alanine aminotransferase increased [Unknown]
  - Red blood cell count decreased [Unknown]
  - Acute coronary syndrome [Unknown]
  - Metastases to meninges [Unknown]
  - Diarrhoea [Unknown]
  - Pain in extremity [Unknown]
  - Neutropenia [Unknown]
  - Osteomyelitis [Unknown]
  - Leukopenia [Unknown]
  - Nausea [Unknown]
  - Hyperbilirubinaemia [Unknown]
  - Cardiac failure [Unknown]
  - Anaemia [Unknown]
  - Loss of consciousness [Unknown]
  - Palmar-plantar erythrodysaesthesia syndrome [Unknown]
  - Peripheral sensory neuropathy [Unknown]
  - Pneumonia [Unknown]
  - Enteritis [Unknown]
  - Aspartate aminotransferase increased [Unknown]
  - Dyspnoea [Unknown]
  - White blood cell count decreased [Unknown]
  - Haematotoxicity [Unknown]
  - Hepatic function abnormal [Unknown]
  - Femur fracture [Unknown]
  - Stomatitis [Unknown]
  - Vomiting [Unknown]
  - Blood triglycerides increased [Unknown]
  - Haemoglobin decreased [Unknown]
